FAERS Safety Report 23055599 (Version 2)
Quarter: 2023Q4

REPORT INFORMATION
  Report Type: Spontaneous
  Country: ES (occurrence: ES)
  Receive Date: 20231011
  Receipt Date: 20231204
  Transmission Date: 20240109
  Serious: Yes (Other)
  Sender: FDA-Public Use
  Company Number: ES-AMGEN-ESPSP2023178695

PATIENT
  Age: 63 Year
  Sex: Female

DRUGS (6)
  1. MVASI [Suspect]
     Active Substance: BEVACIZUMAB-AWWB
     Indication: Hereditary haemorrhagic telangiectasia
     Dosage: 5 MILLIGRAM/KILOGRAM 4 DOSES, Q2WK
     Route: 065
  2. MVASI [Suspect]
     Active Substance: BEVACIZUMAB-AWWB
     Dosage: 5 MILLIGRAM/KILOGRAM 4 DOSES, Q3WK
     Route: 065
  3. MVASI [Suspect]
     Active Substance: BEVACIZUMAB-AWWB
     Dosage: UNK UNK, QMO
     Route: 065
  4. MVASI [Suspect]
     Active Substance: BEVACIZUMAB-AWWB
     Dosage: 10 MILLIGRAM PER KILOGRAM
     Route: 065
  5. IRON [Concomitant]
     Active Substance: IRON
     Route: 065
  6. WHOLE BLOOD [Concomitant]
     Active Substance: WHOLE BLOOD
     Route: 065

REACTIONS (5)
  - Atrial fibrillation [Recovered/Resolved]
  - Left ventricular failure [Unknown]
  - Hereditary haemorrhagic telangiectasia [Recovering/Resolving]
  - Off label use [Unknown]
  - Drug ineffective for unapproved indication [Unknown]
